FAERS Safety Report 5629884-6 (Version None)
Quarter: 2008Q1

REPORT INFORMATION
  Report Type: 
  Country: None (occurrence: None)
  Receive Date: 20080218
  Receipt Date: 20080208
  Transmission Date: 20080703
  Serious: Yes (Life-Threatening, Disabling, Other)
  Sender: FDA-Public Use
  Company Number: PHHO2007JP19036

PATIENT
  Age: 68 Year
  Sex: Female

DRUGS (5)
  1. AREDIA [Suspect]
     Indication: METASTASES TO BONE
     Dosage: 45MG EVERY 2 WEEKS
     Route: 042
     Dates: start: 20041004, end: 20060504
  2. ZOMETA [Suspect]
     Indication: METASTASES TO BONE
     Dosage: UNK, UNK
     Route: 042
     Dates: start: 20060604, end: 20070516
  3. TAXOL [Concomitant]
     Dosage: 130MG
     Route: 042
     Dates: start: 20041215, end: 20050313
  4. ARIMIDEX [Concomitant]
     Dosage: 1MG
     Route: 048
     Dates: start: 20061012, end: 20070420
  5. CEFOTIAM HYDROCHLORIDE [Concomitant]
     Route: 042
     Dates: start: 20070702, end: 20070930

REACTIONS (11)
  - ALTERED STATE OF CONSCIOUSNESS [None]
  - CEREBRAL INFARCTION [None]
  - DISEASE PROGRESSION [None]
  - GINGIVAL INFECTION [None]
  - GINGIVAL SWELLING [None]
  - GINGIVITIS [None]
  - METASTASES TO CENTRAL NERVOUS SYSTEM [None]
  - OSTEONECROSIS [None]
  - PAIN [None]
  - PNEUMONIA [None]
  - SKIN DISORDER [None]
